FAERS Safety Report 10873344 (Version 2)
Quarter: 2016Q2

REPORT INFORMATION
  Report Type: Spontaneous
  Country: GB (occurrence: GB)
  Receive Date: 20150223
  Receipt Date: 20160511
  Transmission Date: 20160815
  Serious: Yes (Other)
  Sender: FDA-Public Use
  Company Number: 2746457

PATIENT
  Age: 60 Year
  Sex: Male
  Weight: 85 kg

DRUGS (8)
  1. BAXTER SALINE [Suspect]
     Active Substance: SODIUM CHLORIDE
     Indication: COLORECTAL CANCER
     Dosage: 0.90%; INFUSED OVER  46 HOURS
     Route: 042
     Dates: start: 20141126
  2. OXALIPLATIN FRESENIUS KABI [Suspect]
     Active Substance: OXALIPLATIN
     Indication: COLORECTAL CANCER
     Dosage: ONCE; OXMDG REGIME
     Route: 042
     Dates: start: 20141222
  3. EMEND [Concomitant]
     Active Substance: APREPITANT
     Indication: PRODUCT USED FOR UNKNOWN INDICATION
     Route: 048
     Dates: start: 20141128
  4. RANITIDINE. [Concomitant]
     Active Substance: RANITIDINE
     Indication: PRODUCT USED FOR UNKNOWN INDICATION
     Route: 048
  5. FLUOROURACIL. [Suspect]
     Active Substance: FLUOROURACIL
     Indication: COLORECTAL CANCER
     Dosage: OXMDG REGIME, IN LV5 PUMP
     Route: 042
     Dates: start: 20150113
  6. FLUOROURACIL. [Suspect]
     Active Substance: FLUOROURACIL
     Indication: COLORECTAL CANCER
     Dosage: ONCE; OXMDG REGIME BOLUS SYRINGE
     Route: 040
     Dates: start: 20141222
  7. EMEND [Concomitant]
     Active Substance: APREPITANT
     Indication: PRODUCT USED FOR UNKNOWN INDICATION
     Dosage: ONCE
     Dates: start: 20141126, end: 20141126
  8. CALCIUM FOLINATE [Suspect]
     Active Substance: LEUCOVORIN CALCIUM
     Indication: WHITE BLOOD CELL COUNT
     Dosage: OXMDG REGIME
     Route: 065
     Dates: start: 20141126

REACTIONS (12)
  - Cough [Not Recovered/Not Resolved]
  - Device infusion issue [Not Recovered/Not Resolved]
  - Malaise [Not Recovered/Not Resolved]
  - Neuropathy peripheral [Not Recovered/Not Resolved]
  - Headache [Recovered/Resolved]
  - Decreased appetite [Recovered/Resolved]
  - Mood swings [Not Recovered/Not Resolved]
  - Oral pain [Recovered/Resolved]
  - Fatigue [Recovered/Resolved with Sequelae]
  - Incorrect drug administration rate [Recovered/Resolved]
  - Malaise [Recovered/Resolved]
  - Fatigue [Not Recovered/Not Resolved]

NARRATIVE: CASE EVENT DATE: 20141127
